FAERS Safety Report 8434725-8 (Version None)
Quarter: 2012Q2

REPORT INFORMATION
  Report Type: 
  Country: None (occurrence: None)
  Receive Date: 20120614
  Receipt Date: 20120606
  Transmission Date: 20120825
  Serious: Yes (Disabling, Other)
  Sender: FDA-Public Use
  Company Number: US-US-EMD SERONO, INC.-7022887

PATIENT
  Sex: Female

DRUGS (3)
  1. REBIF [Suspect]
     Indication: MULTIPLE SCLEROSIS
     Route: 058
     Dates: start: 20100104
  2. MOTRIN [Concomitant]
     Indication: PREMEDICATION
  3. ZYRTEC [Concomitant]
     Indication: SEASONAL ALLERGY
     Dates: start: 20060101

REACTIONS (4)
  - MULTIPLE SCLEROSIS RELAPSE [None]
  - DRUG ADMINISTRATION ERROR [None]
  - INJECTION SITE HAEMATOMA [None]
  - OPTIC NEURITIS [None]
